FAERS Safety Report 7676499-4 (Version None)
Quarter: 2011Q3

REPORT INFORMATION
  Report Type: 
  Country: None (occurrence: None)
  Receive Date: 20110805
  Receipt Date: 20110728
  Transmission Date: 20111222
  Serious: Yes (Hospitalization)
  Sender: FDA-Public Use
  Company Number: TPA2011A04317

PATIENT
  Age: 82 Year
  Sex: Male
  Weight: 69.4003 kg

DRUGS (13)
  1. FINASTERIDE [Concomitant]
  2. PROTONIX [Concomitant]
  3. PLAVIX [Concomitant]
  4. PIOGLITAZONE HCL [Suspect]
     Indication: CEREBROVASCULAR ACCIDENT PROPHYLAXIS
     Dosage: SEE IMAGE
     Route: 048
     Dates: start: 20090103, end: 20090130
  5. PIOGLITAZONE HCL [Suspect]
     Indication: CARDIOVASCULAR EVENT PROPHYLAXIS
     Dosage: SEE IMAGE
     Route: 048
     Dates: start: 20090103, end: 20090130
  6. PIOGLITAZONE HCL [Suspect]
     Indication: CEREBROVASCULAR ACCIDENT PROPHYLAXIS
     Dosage: SEE IMAGE
     Route: 048
     Dates: start: 20090131, end: 20110204
  7. PIOGLITAZONE HCL [Suspect]
     Indication: CARDIOVASCULAR EVENT PROPHYLAXIS
     Dosage: SEE IMAGE
     Route: 048
     Dates: start: 20090131, end: 20110204
  8. PIOGLITAZONE HCL [Suspect]
     Indication: CEREBROVASCULAR ACCIDENT PROPHYLAXIS
     Dosage: SEE IMAGE
     Route: 048
     Dates: start: 20110218, end: 20110329
  9. PIOGLITAZONE HCL [Suspect]
     Indication: CARDIOVASCULAR EVENT PROPHYLAXIS
     Dosage: SEE IMAGE
     Route: 048
     Dates: start: 20110218, end: 20110329
  10. PIOGLITAZONE HCL [Suspect]
     Indication: CEREBROVASCULAR ACCIDENT PROPHYLAXIS
     Dosage: SEE IMAGE
     Route: 048
     Dates: start: 20081205, end: 20090102
  11. PIOGLITAZONE HCL [Suspect]
     Indication: CARDIOVASCULAR EVENT PROPHYLAXIS
     Dosage: SEE IMAGE
     Route: 048
     Dates: start: 20081205, end: 20090102
  12. DULCOLAX [Concomitant]
  13. FLOMAX [Concomitant]

REACTIONS (4)
  - SPINAL OSTEOARTHRITIS [None]
  - ABASIA [None]
  - SPINAL COMPRESSION FRACTURE [None]
  - OEDEMA [None]
